FAERS Safety Report 8839673 (Version 1)
Quarter: 2012Q4

REPORT INFORMATION
  Report Type: Spontaneous
  Country: FR (occurrence: None)
  Receive Date: 20121011
  Receipt Date: 20121011
  Transmission Date: 20130627
  Serious: Yes (Other)
  Sender: FDA-Public Use
  Company Number: 1442467

PATIENT
  Age: 57 Year
  Sex: Male

DRUGS (11)
  1. FLUDARABINE PHOSPHATE [Suspect]
     Indication: SPLENIC MARGINAL ZONE LYMPHOMA
  2. VINCRISTINE SULFATE [Suspect]
     Indication: SPLENIC MARGINAL ZONE LYMPHOMA
  3. CHLORAMBUCIL [Suspect]
     Indication: SPLENIC MARGINAL ZONE LYMPHOMA
  4. CYCLOPHOSPHAMIDE [Suspect]
     Indication: SPLENIC MARGINAL ZONE LYMPHOMA
  5. ADRIAMYCIN [Suspect]
     Indication: SPLENIC MARGINAL ZONE LYMPHOMA
  6. PREDNISOLONE [Suspect]
     Indication: SPLENIC MARGINAL ZONE LYMPHOMA
  7. ALEMTUZUMAB [Suspect]
     Indication: SPLENIC MARGINAL ZONE LYMPHOMA
  8. RITUXIMAB [Suspect]
     Indication: SPLENIC MARGINAL ZONE LYMPHOMA
  9. DEXAMETHASONE [Suspect]
  10. CYCLOSPORINE [Suspect]
     Indication: SPLENIC MARGINAL ZONE LYMPHOMA
  11. CYTARABINE [Suspect]
     Indication: SPLENIC MARGINAL ZONE LYMPHOMA

REACTIONS (1)
  - Hodgkin^s disease [None]
